FAERS Safety Report 15255754 (Version 1)
Quarter: 2018Q3

REPORT INFORMATION
  Report Type: Spontaneous
  Country: US (occurrence: US)
  Receive Date: 20180718
  Receipt Date: 20180718
  Transmission Date: 20181010
  Serious: No
  Sender: FDA-Public Use
  Company Number: None

PATIENT
  Age: 54 Year
  Sex: Female

DRUGS (1)
  1. SILIQ [Suspect]
     Active Substance: BRODALUMAB
     Indication: PSORIASIS
     Route: 058

REACTIONS (4)
  - Diarrhoea [None]
  - Gastrointestinal disorder [None]
  - Muscle spasms [None]
  - Influenza [None]

NARRATIVE: CASE EVENT DATE: 20180716
